FAERS Safety Report 17283186 (Version 2)
Quarter: 2020Q2

REPORT INFORMATION
  Report Type: Spontaneous
  Country: US (occurrence: US)
  Receive Date: 20200117
  Receipt Date: 20200414
  Transmission Date: 20200713
  Serious: No
  Sender: FDA-Public Use
  Company Number: US-PFIZER INC-2020021724

PATIENT
  Age: 56 Year
  Sex: Female

DRUGS (1)
  1. XELJANZ XR [Suspect]
     Active Substance: TOFACITINIB CITRATE
     Indication: RHEUMATOID ARTHRITIS
     Dosage: 11 MG, DAILY
     Route: 048
     Dates: start: 201909

REACTIONS (7)
  - Hair follicle tumour benign [Unknown]
  - Arthralgia [Unknown]
  - Diarrhoea [Unknown]
  - Feeling abnormal [Unknown]
  - Poor quality sleep [Unknown]
  - Drug ineffective [Unknown]
  - Depressed mood [Unknown]
